FAERS Safety Report 12370479 (Version 1)
Quarter: 2016Q2

REPORT INFORMATION
  Report Type: Spontaneous
  Country: US (occurrence: None)
  Receive Date: 20160513
  Receipt Date: 20160513
  Transmission Date: 20160815
  Serious: No
  Sender: FDA-Public Use
  Company Number: None

PATIENT
  Sex: Female

DRUGS (1)
  1. STELARA [Suspect]
     Active Substance: USTEKINUMAB
     Indication: MYOCARDITIS
     Dosage: EVERY 3 MONTHS
     Route: 058

REACTIONS (3)
  - Weight increased [None]
  - Loss of employment [None]
  - Decreased activity [None]
